FAERS Safety Report 13678633 (Version 1)
Quarter: 2017Q2

REPORT INFORMATION
  Report Type: Spontaneous
  Country: US (occurrence: US)
  Receive Date: 20170622
  Receipt Date: 20170622
  Transmission Date: 20170830
  Serious: No
  Sender: FDA-Public Use
  Company Number: US-SA-2016SA116382

PATIENT
  Age: 44 Year
  Sex: Female
  Weight: 48.98 kg

DRUGS (1)
  1. CEREZYME [Suspect]
     Active Substance: IMIGLUCERASE
     Indication: GAUCHER^S DISEASE
     Dosage: DOSE:114.5 UNIT(S)/KILOGRAM BODYWEIGHT
     Route: 041
     Dates: start: 20160527

REACTIONS (2)
  - Fatigue [Unknown]
  - Bone pain [Not Recovered/Not Resolved]

NARRATIVE: CASE EVENT DATE: 20160609
